FAERS Safety Report 5064721-2 (Version None)
Quarter: 2006Q3

REPORT INFORMATION
  Report Type: 
  Country: None (occurrence: None)
  Receive Date: 20060728
  Receipt Date: 20060719
  Transmission Date: 20061208
  Serious: Yes (Hospitalization)
  Sender: FDA-Public Use
  Company Number: GR-ROCHE-456109

PATIENT
  Age: 6 Year
  Sex: Female
  Weight: 26 kg

DRUGS (5)
  1. ROCEPHIN [Suspect]
     Indication: MENINGITIS
     Route: 042
     Dates: start: 20060603, end: 20060613
  2. VONCON [Suspect]
     Indication: MENINGITIS
     Route: 042
     Dates: start: 20060603, end: 20060609
  3. ZOVIRAX [Concomitant]
     Indication: MENINGITIS
     Route: 042
     Dates: start: 20060603, end: 20060605
  4. PHENYTOIN SODIUM CAP [Concomitant]
     Route: 042
     Dates: start: 20060603, end: 20060607
  5. DECADRON [Concomitant]
     Indication: MENINGITIS
     Route: 042
     Dates: start: 20060603, end: 20060607

REACTIONS (4)
  - C-REACTIVE PROTEIN INCREASED [None]
  - LEUKOCYTOSIS [None]
  - PURPURA [None]
  - PYREXIA [None]
